FAERS Safety Report 20538546 (Version 1)
Quarter: 2022Q1

REPORT INFORMATION
  Report Type: Spontaneous
  Country: CN (occurrence: CN)
  Receive Date: 20220302
  Receipt Date: 20220302
  Transmission Date: 20220423
  Serious: Yes (Other)
  Sender: FDA-Public Use
  Company Number: CN-JNJFOC-20210844510

PATIENT

DRUGS (1)
  1. IBUPROFEN [Suspect]
     Active Substance: IBUPROFEN
     Indication: Patent ductus arteriosus
     Dosage: 10 MG PER KILOGRAM OF BODY WEIGHT, AND THE DOSE ON DAY 2-3 WAS CHANGED TO 5 MG PER KILOGRAM OF BODY
     Route: 048

REACTIONS (7)
  - Hyperbilirubinaemia [Unknown]
  - Product use in unapproved indication [Unknown]
  - Off label use [Unknown]
  - Renal impairment [Unknown]
  - Intraventricular haemorrhage [Unknown]
  - Gastrointestinal haemorrhage [Unknown]
  - Therapeutic response unexpected [Unknown]
